FAERS Safety Report 6173594-6 (Version None)
Quarter: 2009Q2

REPORT INFORMATION
  Report Type: 
  Country: None (occurrence: None)
  Receive Date: 20090429
  Receipt Date: 20090429
  Transmission Date: 20091009
  Serious: Yes (Other)
  Sender: FDA-Public Use
  Company Number: None

PATIENT
  Sex: Female
  Weight: 58.9676 kg

DRUGS (1)
  1. PROGESTERONE [Suspect]

REACTIONS (13)
  - ABDOMINAL PAIN [None]
  - ACNE CYSTIC [None]
  - ARTHRALGIA [None]
  - BACK PAIN [None]
  - COMPLICATION OF DEVICE INSERTION [None]
  - FEELING ABNORMAL [None]
  - FLUID RETENTION [None]
  - GAIT DISTURBANCE [None]
  - HYPOAESTHESIA [None]
  - NIGHT SWEATS [None]
  - PANIC ATTACK [None]
  - PROCEDURAL PAIN [None]
  - SENSATION OF PRESSURE [None]
